FAERS Safety Report 11435464 (Version 1)
Quarter: 2015Q3

REPORT INFORMATION
  Report Type: Spontaneous
  Country: US (occurrence: US)
  Receive Date: 20150821
  Receipt Date: 20150821
  Transmission Date: 20151125
  Serious: No
  Sender: FDA-Public Use
  Company Number: US-ELI_LILLY_AND_COMPANY-US201308002414

PATIENT
  Sex: Male
  Weight: 86.17 kg

DRUGS (3)
  1. ADVAIR HFA [Concomitant]
     Active Substance: FLUTICASONE PROPIONATE\SALMETEROL XINAFOATE
     Dosage: UNK
     Dates: start: 2001
  2. MULTIVITAMIN [Concomitant]
     Active Substance: VITAMINS
  3. CIALIS [Suspect]
     Active Substance: TADALAFIL
     Indication: ERECTILE DYSFUNCTION
     Dosage: 10 MG, PRN
     Route: 048
     Dates: start: 20130729, end: 20130729

REACTIONS (6)
  - Myalgia [Recovered/Resolved]
  - Rash [Not Recovered/Not Resolved]
  - Pruritus generalised [Recovering/Resolving]
  - Arthralgia [Recovered/Resolved]
  - Feeling hot [Recovered/Resolved]
  - Skin burning sensation [Recovering/Resolving]
